FAERS Safety Report 4336602-0 (Version None)
Quarter: 2004Q2

REPORT INFORMATION
  Report Type: 
  Country: None (occurrence: None)
  Receive Date: 20040409
  Receipt Date: 20040409
  Transmission Date: 20050107
  Serious: Yes (Hospitalization)
  Sender: FDA-Public Use
  Company Number: None

PATIENT
  Age: 85 Year
  Sex: Female

DRUGS (7)
  1. METRONIDAZOLE [Suspect]
     Indication: ASPIRATION
     Dosage: 500 MG Q6H   INTRAVENOUS
     Route: 042
     Dates: start: 20040405, end: 20040407
  2. LANOXIN [Concomitant]
  3. COUMADIN [Concomitant]
  4. SYNTHROID [Concomitant]
  5. ZOLOFT [Concomitant]
  6. AMPICILLIN [Concomitant]
  7. LANTUS [Concomitant]

REACTIONS (5)
  - AGITATION [None]
  - CEREBROVASCULAR ACCIDENT [None]
  - CONFUSIONAL STATE [None]
  - DIVERTICULITIS [None]
  - HALLUCINATION [None]
